FAERS Safety Report 22612652 (Version 1)
Quarter: 2023Q2

REPORT INFORMATION
  Report Type: Spontaneous
  Country: CA (occurrence: CA)
  Receive Date: 20230617
  Receipt Date: 20230617
  Transmission Date: 20230721
  Serious: Yes (Other)
  Sender: FDA-Public Use
  Company Number: CA-002147023-NVSC2023CA134791

PATIENT
  Age: 46 Year
  Sex: Female

DRUGS (1)
  1. LEVETIRACETAM [Suspect]
     Active Substance: LEVETIRACETAM
     Indication: Partial seizures
     Dosage: 100 MG, BID (2 EVERY 1 DAYS)
     Route: 048

REACTIONS (6)
  - Discomfort [Unknown]
  - Seizure [Unknown]
  - Affect lability [Unknown]
  - Crying [Unknown]
  - Feeling abnormal [Unknown]
  - Intrusive thoughts [Unknown]
